FAERS Safety Report 7401718-9 (Version None)
Quarter: 2011Q1

REPORT INFORMATION
  Report Type: 
  Country: None (occurrence: None)
  Receive Date: 20110329
  Receipt Date: 20110321
  Transmission Date: 20110831
  Serious: Yes (Other)
  Sender: FDA-Public Use
  Company Number: TRP_07606_2011

PATIENT
  Sex: Female

DRUGS (2)
  1. RIBAVIRIN [Suspect]
     Indication: HEPATITIS C
     Dosage: (DF) ; (LOWERED DOSE)
  2. PEG-INTRON [Suspect]
     Indication: HEPATITIS C
     Dosage: (DF) ; (LOWERED DOSE)

REACTIONS (4)
  - GRANULOCYTOPENIA [None]
  - THERAPEUTIC RESPONSE DECREASED [None]
  - PSORIASIS [None]
  - BONE MARROW TOXICITY [None]
